FAERS Safety Report 16698041 (Version 2)
Quarter: 2019Q3

REPORT INFORMATION
  Report Type: Report from Study
  Country: ZA (occurrence: ZA)
  Receive Date: 20190813
  Receipt Date: 20190912
  Transmission Date: 20191004
  Serious: Yes (Hospitalization)
  Sender: FDA-Public Use
  Company Number: ZA-PFIZER INC-2019340870

PATIENT
  Age: 73 Year
  Sex: Female
  Weight: 74 kg

DRUGS (9)
  1. OMEZ [OMEPRAZOLE] [Concomitant]
     Active Substance: OMEPRAZOLE
     Indication: PROPHYLAXIS
     Dosage: 20 MG, PRN
     Route: 048
     Dates: start: 2010
  2. CARBILEV [Concomitant]
     Active Substance: CARBIDOPA\LEVODOPA
     Indication: PARKINSON^S DISEASE
     Dosage: 5 DF, DAILY
     Route: 048
     Dates: start: 2004
  3. TOFACITINIB CITRATE [Suspect]
     Active Substance: TOFACITINIB CITRATE
     Indication: RHEUMATOID ARTHRITIS
     Dosage: 5 MG, UNK
     Route: 048
     Dates: start: 20150715
  4. METHOTREXATE SODIUM. [Suspect]
     Active Substance: METHOTREXATE SODIUM
     Indication: RHEUMATOID ARTHRITIS
     Dosage: 20 MG, WEEKLY
     Route: 048
     Dates: start: 1997
  5. SIMVASTATIN. [Concomitant]
     Active Substance: SIMVASTATIN
     Indication: DYSLIPIDAEMIA
     Dosage: 20 MG, DAILY
     Route: 048
     Dates: start: 2004
  6. FOLIC ACID. [Concomitant]
     Active Substance: FOLIC ACID
     Indication: RHEUMATOID ARTHRITIS
     Dosage: 5 MG, DAILY
     Route: 048
     Dates: start: 1997
  7. CALTRATE [CALCIUM CARBONATE;COLECALCIFEROL] [Concomitant]
     Indication: OSTEOPOROSIS PROPHYLAXIS
     Dosage: 1 DF, DAILY
     Route: 048
     Dates: start: 2010
  8. PARKILYNE [Concomitant]
     Indication: PARKINSON^S DISEASE
     Dosage: 2 DF, DAILY
     Route: 048
     Dates: start: 20161001
  9. PAINAMOL [Concomitant]
     Indication: RHEUMATOID ARTHRITIS
     Dosage: 2 DF, 1X/DAY
     Route: 048
     Dates: start: 19970101

REACTIONS (1)
  - Colitis [Recovered/Resolved]

NARRATIVE: CASE EVENT DATE: 20190727
